FAERS Safety Report 10158368 (Version 1)
Quarter: 2014Q2

REPORT INFORMATION
  Report Type: Report from Study
  Country: US (occurrence: US)
  Receive Date: 20140507
  Receipt Date: 20140507
  Transmission Date: 20141212
  Serious: Yes (Hospitalization)
  Sender: FDA-Public Use
  Company Number: US-ABBVIE-14P-163-1231387-00

PATIENT
  Age: 26 Year
  Sex: Female
  Weight: 52.66 kg

DRUGS (6)
  1. PREDNISONE [Concomitant]
     Indication: COLITIS ULCERATIVE
  2. FERROUS SULFATE [Concomitant]
     Indication: ANAEMIA
  3. NORCO [Concomitant]
     Indication: PAIN
  4. ZOFRAN [Concomitant]
     Indication: NAUSEA
  5. HUMIRA [Suspect]
     Indication: COLITIS ULCERATIVE
     Route: 058
     Dates: start: 201310, end: 20140418
  6. APRISO [Concomitant]
     Indication: COLITIS ULCERATIVE

REACTIONS (8)
  - Inflammation [Not Recovered/Not Resolved]
  - Pyrexia [Recovered/Resolved]
  - Abdominal pain [Recovered/Resolved]
  - Haemoglobin decreased [Recovered/Resolved]
  - Blood potassium decreased [Recovered/Resolved]
  - Night sweats [Recovered/Resolved]
  - Lymphadenopathy [Not Recovered/Not Resolved]
  - Drug ineffective [Not Recovered/Not Resolved]
